FAERS Safety Report 4549678-2 (Version None)
Quarter: 2005Q1

REPORT INFORMATION
  Report Type: 
  Country: None (occurrence: None)
  Receive Date: 20050106
  Receipt Date: 20041230
  Transmission Date: 20050727
  Serious: Yes (Life-Threatening, Hospitalization)
  Sender: FDA-Public Use
  Company Number: 2004SE06916

PATIENT
  Age: 87 Year
  Sex: Male
  Weight: 75 kg

DRUGS (8)
  1. BLOPRESS [Suspect]
     Indication: CARDIAC FAILURE
     Dosage: 4 MG QD PO
     Route: 048
     Dates: start: 20041111, end: 20041115
  2. BLOPRESS [Suspect]
     Indication: HYPERTENSION
     Dosage: 4 MG QD PO
     Route: 048
     Dates: start: 20041111, end: 20041115
  3. BLOPRESS [Suspect]
     Indication: CARDIAC FAILURE
     Dosage: 8 MG QD PO
     Route: 048
     Dates: start: 20041116, end: 20041120
  4. BLOPRESS [Suspect]
     Indication: HYPERTENSION
     Dosage: 8 MG QD PO
     Route: 048
     Dates: start: 20041116, end: 20041120
  5. DIART [Suspect]
     Indication: PULMONARY CONGESTION
     Dosage: 60 MG QD PO
     Route: 048
     Dates: start: 20041111, end: 20041120
  6. DIGOXIN [Suspect]
     Indication: ATRIAL FIBRILLATION
     Dosage: 0.125 MG QD PO
     Route: 048
     Dates: start: 20041109, end: 20041120
  7. WARFARIN [Concomitant]
  8. THEOPHYLLINE [Concomitant]

REACTIONS (17)
  - ATRIAL FIBRILLATION [None]
  - BACTERIAL INFECTION [None]
  - BLOOD CULTURE POSITIVE [None]
  - CARDIAC FAILURE [None]
  - CHROMATURIA [None]
  - CYTOMEGALOVIRUS INFECTION [None]
  - DEPRESSED LEVEL OF CONSCIOUSNESS [None]
  - DRUG ERUPTION [None]
  - DRUG INEFFECTIVE [None]
  - HENOCH-SCHONLEIN PURPURA [None]
  - HYPOVOLAEMIA [None]
  - INTERSTITIAL LUNG DISEASE [None]
  - LYMPHOCYTE STIMULATION TEST POSITIVE [None]
  - MELAENA [None]
  - PANCYTOPENIA [None]
  - RENAL FAILURE [None]
  - VASCULITIS [None]
